FAERS Safety Report 12210570 (Version 1)
Quarter: 2016Q1

REPORT INFORMATION
  Report Type: Spontaneous
  Country: None (occurrence: None)
  Receive Date: 20160324
  Receipt Date: 20160324
  Transmission Date: 20160526
  Serious: No
  Sender: FDA-Public Use
  Company Number: None

PATIENT
  Age: 34 Year
  Sex: Female
  Weight: 63.96 kg

DRUGS (13)
  1. HYDROMORPHONE CONTIN 3MG + 6MG [Suspect]
     Active Substance: HYDROMORPHONE
     Indication: PAIN
     Dosage: ONE 3MG + 6MG CAPSULE TWICE DAILY TAKEN BY MOUTH
     Route: 048
     Dates: start: 20151002, end: 20160323
  2. CIPRALEX 20 MG [Suspect]
     Active Substance: ESCITALOPRAM OXALATE
     Indication: ANXIETY
     Dosage: 20MG / ONE TABLET HS ONCE DAILY TAKEN BY MOUTH
     Route: 048
     Dates: start: 20080407, end: 20160323
  3. CIPROLEX [Concomitant]
     Active Substance: CIPROFLOXACIN HYDROCHLORIDE
  4. LORAZEPAM. [Concomitant]
     Active Substance: LORAZEPAM
  5. LACTULOSE. [Concomitant]
     Active Substance: LACTULOSE
  6. DEXEDRINE [Concomitant]
     Active Substance: DEXTROAMPHETAMINE SULFATE
  7. SODIUM OXYBATE [Concomitant]
     Active Substance: SODIUM OXYBATE
  8. VITAMIN B COMPLEX [Concomitant]
     Active Substance: CYANOCOBALAMIN\DEXPANTHENOL\NIACINAMIDE\PYRIDOXINE HYDROCHLORIDE\RIBOFLAVIN 5^-PHOSPHATE SODIUM\THIAMINE HYDROCHLORIDE\VITAMIN B COMPLEX
  9. CIPRALEX 20 MG [Suspect]
     Active Substance: ESCITALOPRAM OXALATE
     Indication: DEPRESSION
     Dosage: 20MG / ONE TABLET HS ONCE DAILY TAKEN BY MOUTH
     Route: 048
     Dates: start: 20080407, end: 20160323
  10. HYDROMORPHONE [Concomitant]
     Active Substance: HYDROMORPHONE
  11. CLONAZEPAM. [Concomitant]
     Active Substance: CLONAZEPAM
  12. CELEBREX [Concomitant]
     Active Substance: CELECOXIB
  13. LANSOPRAZOLE. [Concomitant]
     Active Substance: LANSOPRAZOLE

REACTIONS (6)
  - Weight decreased [None]
  - Muscle rigidity [None]
  - Myoclonus [None]
  - Restlessness [None]
  - Nausea [None]
  - Stress [None]

NARRATIVE: CASE EVENT DATE: 20160225
